FAERS Safety Report 8731584 (Version 2)
Quarter: 2012Q4

REPORT INFORMATION
  Report Type: 
  Country: GB (occurrence: GB)
  Receive Date: 20120820
  Receipt Date: 20120921
  Transmission Date: 20130627
  Serious: Yes (Life-Threatening, Other)
  Sender: FDA-Public Use
  Company Number: GB-JNJFOC-20120808297

PATIENT
  Age: 19 Month
  Sex: Male
  Weight: 11 kg

DRUGS (1)
  1. DORIPENEM [Suspect]
     Indication: BACTERIAL INFECTION
     Route: 041
     Dates: start: 20120609, end: 20120611

REACTIONS (4)
  - Hepatic function abnormal [Unknown]
  - Accidental overdose [Unknown]
  - Liver function test abnormal [Recovered/Resolved]
  - Drug prescribing error [Recovered/Resolved]
